FAERS Safety Report 9633959 (Version 2)
Quarter: 2013Q4

REPORT INFORMATION
  Report Type: Spontaneous
  Country: CL (occurrence: CL)
  Receive Date: 20131021
  Receipt Date: 20131120
  Transmission Date: 20140711
  Serious: Yes (Other)
  Sender: FDA-Public Use
  Company Number: CL-PFIZER INC-2013297655

PATIENT
  Age: 79 Year
  Sex: Female

DRUGS (4)
  1. XALATAN [Suspect]
     Dosage: UNK
     Dates: start: 2012, end: 20130417
  2. LOSARTAN [Concomitant]
     Dosage: UNK
  3. METFORMIN [Concomitant]
     Dosage: UNK
  4. ASPIRINA [Concomitant]
     Dosage: UNK

REACTIONS (3)
  - Cataract [Unknown]
  - Cataract [Unknown]
  - Lung disorder [Unknown]
